FAERS Safety Report 8825504 (Version 1)
Quarter: 2012Q4

REPORT INFORMATION
  Report Type: 
  Country: CN (occurrence: CN)
  Receive Date: 20121004
  Receipt Date: 20121004
  Transmission Date: 20130627
  Serious: Yes (Hospitalization)
  Sender: FDA-Public Use
  Company Number: CN-JNJFOC-20121000109

PATIENT
  Age: 64 Year
  Sex: Female

DRUGS (1)
  1. TYLENOL COLD [Suspect]
     Indication: NASOPHARYNGITIS
     Route: 048
     Dates: start: 20090724, end: 20090724

REACTIONS (1)
  - Tremor [Recovered/Resolved]
